FAERS Safety Report 7620629-7 (Version None)
Quarter: 2011Q3

REPORT INFORMATION
  Report Type: 
  Country: None (occurrence: None)
  Receive Date: 20110719
  Receipt Date: 20110714
  Transmission Date: 20111222
  Serious: Yes (Other)
  Sender: FDA-Public Use
  Company Number: CA-EISAI INC-E2020-09457-SPO-CA

PATIENT
  Age: 92 Year
  Sex: Male

DRUGS (1)
  1. ARICEPT [Suspect]
     Route: 048

REACTIONS (1)
  - ELECTROCARDIOGRAM QT PROLONGED [None]
